FAERS Safety Report 19475329 (Version 1)
Quarter: 2021Q2

REPORT INFORMATION
  Report Type: Report from Study
  Country: NL (occurrence: NL)
  Receive Date: 20210629
  Receipt Date: 20210629
  Transmission Date: 20210717
  Serious: Yes (Hospitalization)
  Sender: FDA-Public Use
  Company Number: NL-REGENERON PHARMACEUTICALS, INC.-2021-64091

PATIENT

DRUGS (14)
  1. CEMIPLIMAB [Suspect]
     Active Substance: CEMIPLIMAB
     Dosage: 350 MG, Q3W
     Route: 042
     Dates: start: 20201111, end: 20201111
  2. MACROGOL [Concomitant]
     Active Substance: POLYETHYLENE GLYCOLS
     Indication: PRODUCT USED FOR UNKNOWN INDICATION
     Dosage: TOTAL DAILY DOSE: 1 SACHET
     Route: 048
  3. TRIAMCINOLONACETONIDE [Concomitant]
     Active Substance: TRIAMCINOLONE ACETONIDE
     Indication: PRODUCT USED FOR UNKNOWN INDICATION
     Dosage: TOTAL DAILY DOSE: 3 APPLICATION UNIT
     Route: 061
     Dates: start: 20201202
  4. SALBUTAMOL [Concomitant]
     Active Substance: ALBUTEROL
     Indication: PRODUCT USED FOR UNKNOWN INDICATION
     Dosage: TOTAL DAILY DOSE: 400 UG
     Route: 055
     Dates: start: 20210205
  5. PARACETAMOL [Concomitant]
     Active Substance: ACETAMINOPHEN
     Indication: PRODUCT USED FOR UNKNOWN INDICATION
     Dosage: TOTAL DAILY DSOE: 4000 MG, PRN
     Route: 048
  6. CARBOMER;HYALURONIC ACID [Concomitant]
     Indication: PRODUCT USED FOR UNKNOWN INDICATION
     Dosage: TOTAL DAILY DOSE: 4 DROP, PRN
     Route: 047
  7. OLODATEROL + TIOTROPIUM [Concomitant]
     Active Substance: OLODATEROL HYDROCHLORIDE\TIOTROPIUM BROMIDE MONOHYDRATE
     Indication: PRODUCT USED FOR UNKNOWN INDICATION
     Dosage: TOTAL DAILY DOSE: 2 INHALATION
     Route: 055
     Dates: start: 20210217
  8. SAR439459 [Suspect]
     Active Substance: SAR-439459
     Dosage: UNK UNK, Q3W
     Route: 042
     Dates: start: 20201111, end: 20201111
  9. BETAMETHASONE. [Concomitant]
     Active Substance: BETAMETHASONE
     Indication: PRODUCT USED FOR UNKNOWN INDICATION
     Dosage: TOTAL DAILY DOSE: 1 APPLICATION UNIT
     Route: 061
     Dates: start: 20201228
  10. TRAMADOL/PARACETAMOL [Concomitant]
     Active Substance: ACETAMINOPHEN\TRAMADOL
     Indication: PRODUCT USED FOR UNKNOWN INDICATION
     Dosage: TOTAL DAILY DOSE: 3 TABLET
     Route: 048
     Dates: start: 20210113
  11. CEMIPLIMAB [Suspect]
     Active Substance: CEMIPLIMAB
     Indication: LUNG ADENOCARCINOMA STAGE IV
     Dosage: 350 MG, Q3W
     Route: 042
     Dates: start: 20210203, end: 20210203
  12. SAR439459 [Suspect]
     Active Substance: SAR-439459
     Indication: LUNG ADENOCARCINOMA STAGE IV
     Dosage: UNK UNK, Q3W
     Route: 042
     Dates: start: 20210203, end: 20210203
  13. HYDROXYZINE [Concomitant]
     Active Substance: HYDROXYZINE HYDROCHLORIDE
     Indication: PRODUCT USED FOR UNKNOWN INDICATION
     Dosage: TOTAL DAILY DOSE: 75 MG
     Route: 048
     Dates: start: 20210219
  14. DESLORATADINE. [Concomitant]
     Active Substance: DESLORATADINE
     Indication: PRODUCT USED FOR UNKNOWN INDICATION
     Dosage: TOTAL DAILY DOSE: 20 MG
     Route: 048
     Dates: start: 20201228

REACTIONS (1)
  - Radiculopathy [Not Recovered/Not Resolved]

NARRATIVE: CASE EVENT DATE: 20210618
